FAERS Safety Report 6778769-0 (Version None)
Quarter: 2010Q2

REPORT INFORMATION
  Report Type: 
  Country: None (occurrence: None)
  Receive Date: 20100618
  Receipt Date: 20100614
  Transmission Date: 20101027
  Serious: Yes (Life-Threatening, Other)
  Sender: FDA-Public Use
  Company Number: US-BAYER-201025498NA

PATIENT
  Sex: Female

DRUGS (3)
  1. YAZ [Suspect]
     Indication: DYSMENORRHOEA
     Route: 048
     Dates: start: 20070901, end: 20080101
  2. YAZ [Suspect]
     Route: 048
     Dates: start: 20090101, end: 20090401
  3. YAZ [Suspect]
     Route: 048
     Dates: start: 20091101

REACTIONS (5)
  - ABDOMINAL PAIN [None]
  - DEPRESSION SUICIDAL [None]
  - GALLBLADDER DISORDER [None]
  - NAUSEA [None]
  - SUICIDE ATTEMPT [None]
